FAERS Safety Report 5502708-3 (Version None)
Quarter: 2007Q4

REPORT INFORMATION
  Report Type: 
  Country: None (occurrence: None)
  Receive Date: 20071031
  Receipt Date: 20070904
  Transmission Date: 20080405
  Serious: Yes (Hospitalization, Other)
  Sender: FDA-Public Use
  Company Number: US-NOVOPROD-267146

PATIENT

DRUGS (1)
  1. LEVEMIR [Suspect]
     Indication: INSULIN-REQUIRING TYPE II DIABETES MELLITUS
     Dosage: 46 IU, QD
     Route: 058
     Dates: start: 20070830

REACTIONS (3)
  - DYSPNOEA [None]
  - RASH PRURITIC [None]
  - THROAT TIGHTNESS [None]
